FAERS Safety Report 5487338-4 (Version None)
Quarter: 2007Q4

REPORT INFORMATION
  Report Type: 
  Country: None (occurrence: None)
  Receive Date: 20071016
  Receipt Date: 20071005
  Transmission Date: 20080405
  Serious: Yes (Other)
  Sender: FDA-Public Use
  Company Number: AU-PFIZER INC-2007073641

PATIENT
  Sex: Female

DRUGS (4)
  1. ZELDOX (CAPSULES) [Suspect]
     Indication: SCHIZOPHRENIA
     Route: 048
  2. ALL OTHER THERAPEUTIC PRODUCTS [Concomitant]
  3. EPILIM [Concomitant]
     Route: 048
  4. EFFEXOR XR [Concomitant]
     Route: 048

REACTIONS (5)
  - BREAST ENGORGEMENT [None]
  - BREAST MASS [None]
  - BREAST PAIN [None]
  - GALACTORRHOEA [None]
  - MENSTRUATION IRREGULAR [None]
